FAERS Safety Report 5946187-0 (Version None)
Quarter: 2008Q4

REPORT INFORMATION
  Report Type: 
  Country: None (occurrence: None)
  Receive Date: 20081106
  Receipt Date: 20081024
  Transmission Date: 20090506
  Serious: Yes (Other)
  Sender: FDA-Public Use
  Company Number: DSU-2008-01796

PATIENT
  Age: 75 Year
  Sex: Female

DRUGS (6)
  1. OLMESARTAN MEDOXOMIL AND HYDROCHLOROTHIZIDE [Suspect]
     Indication: HYPERTENSION
     Dosage: 40/ 12.5 MG (QD), PER ORAL
     Route: 048
     Dates: start: 20081023, end: 20081023
  2. AAS PROTECT (ACETYLSALICYLIC ACID) (ACETYLSALICYLIC ACID) [Concomitant]
  3. OMEPRAZOLE [Concomitant]
  4. OSTEONUTRI [CALCIUM 600MG/VITAMIN D3] (ERGOCALCIFEROL, CALCIUM PHOSPHA [Concomitant]
  5. SIMVASATIN (SIMVASTATIN) (SIMVASTATIN) [Concomitant]
  6. TRANQUINAL (ALPRAZOLAM) (ALPRAZOLAM) [Concomitant]

REACTIONS (3)
  - ERYTHEMA [None]
  - SENSORY DISTURBANCE [None]
  - SLEEP DISORDER [None]
